FAERS Safety Report 14918607 (Version 2)
Quarter: 2019Q3

REPORT INFORMATION
  Report Type: Spontaneous
  Country: US (occurrence: US)
  Receive Date: 20180521
  Receipt Date: 20190731
  Transmission Date: 20191004
  Serious: Yes (Other)
  Sender: FDA-Public Use
  Company Number: US-PFIZER INC-2018201572

PATIENT
  Age: 83 Year
  Sex: Male

DRUGS (1)
  1. TAPAZOLE [Suspect]
     Active Substance: METHIMAZOLE
     Indication: THYROID DISORDER
     Dosage: 10 MG, 3X/DAY
     Route: 048

REACTIONS (5)
  - Poor quality product administered [Unknown]
  - Cerebrovascular accident [Unknown]
  - Memory impairment [Unknown]
  - Product container seal issue [Unknown]
  - Hypoacusis [Unknown]
